FAERS Safety Report 8114588-0 (Version None)
Quarter: 2012Q1

REPORT INFORMATION
  Report Type: 
  Country: None (occurrence: None)
  Receive Date: 20120206
  Receipt Date: 20120131
  Transmission Date: 20120608
  Serious: No
  Sender: FDA-Public Use
  Company Number: US-PFIZER INC-2012029246

PATIENT
  Age: 59 Year
  Sex: Male

DRUGS (2)
  1. INFLUENZA VACCINE [Concomitant]
     Dosage: UNK
  2. ATORVASTATIN CALCIUM [Suspect]
     Dosage: UNK

REACTIONS (2)
  - HEADACHE [None]
  - DIARRHOEA [None]
